FAERS Safety Report 5977301-9 (Version None)
Quarter: 2008Q4

REPORT INFORMATION
  Report Type: 
  Country: None (occurrence: None)
  Receive Date: 20081203
  Receipt Date: 20081126
  Transmission Date: 20090506
  Serious: Yes (Hospitalization)
  Sender: FDA-Public Use
  Company Number: FR-ELI_LILLY_AND_COMPANY-FR200811006211

PATIENT
  Age: 75 Year
  Sex: Female

DRUGS (3)
  1. FORTEO [Suspect]
     Indication: OSTEOPOROSIS
     Dosage: 20 UG, DAILY (1/D)
     Route: 065
     Dates: start: 20070705
  2. LODOZ [Concomitant]
     Indication: HYPERTENSION
     Dosage: 5 MG, DAILY (1/D)
     Route: 065
  3. APROVEL [Concomitant]
     Dosage: 300 MG, DAILY (1/D)
     Route: 065

REACTIONS (2)
  - ELECTROCARDIOGRAM ABNORMAL [None]
  - FATIGUE [None]
